FAERS Safety Report 21415230 (Version 1)
Quarter: 2022Q4

REPORT INFORMATION
  Report Type: Spontaneous
  Country: US (occurrence: US)
  Receive Date: 20221006
  Receipt Date: 20221006
  Transmission Date: 20230112
  Serious: No
  Sender: FDA-Public Use
  Company Number: US-SA-SAC20221005000144

PATIENT
  Sex: Male

DRUGS (4)
  1. DUPIXENT [Suspect]
     Active Substance: DUPILUMAB
     Dosage: 300MG QOW
     Route: 058
  2. OMEPRAZOLE [Concomitant]
     Active Substance: OMEPRAZOLE
  3. SILDENAFIL [Concomitant]
     Active Substance: SILDENAFIL
  4. SSD [Concomitant]
     Active Substance: SILVER SULFADIAZINE

REACTIONS (3)
  - Insomnia [Unknown]
  - Condition aggravated [Unknown]
  - Arthralgia [Unknown]
